FAERS Safety Report 19689267 (Version 1)
Quarter: 2021Q3

REPORT INFORMATION
  Report Type: Spontaneous
  Country: DE (occurrence: DE)
  Receive Date: 20210812
  Receipt Date: 20210812
  Transmission Date: 20211014
  Serious: Yes (Hospitalization)
  Sender: FDA-Public Use
  Company Number: DE-TEVA-2021-DE-1940368

PATIENT
  Sex: Male

DRUGS (1)
  1. GLATIRAMER?ACETATE [Suspect]
     Active Substance: GLATIRAMER ACETATE
     Indication: MULTIPLE SCLEROSIS
     Dosage: FOR 4 YEARS
     Route: 058

REACTIONS (2)
  - Injection site reaction [Recovered/Resolved]
  - Embolia cutis medicamentosa [Recovered/Resolved]
